FAERS Safety Report 13538229 (Version 4)
Quarter: 2018Q1

REPORT INFORMATION
  Report Type: Report from Study
  Country: BE (occurrence: BE)
  Receive Date: 20170512
  Receipt Date: 20180126
  Transmission Date: 20180508
  Serious: Yes (Life-Threatening, Hospitalization)
  Sender: FDA-Public Use
  Company Number: BE-ROCHE-1933270

PATIENT
  Age: 60 Year
  Sex: Male
  Weight: 103 kg

DRUGS (3)
  1. TOCILIZUMAB. [Suspect]
     Active Substance: TOCILIZUMAB
     Indication: RHEUMATOID ARTHRITIS
     Route: 058
     Dates: start: 20161205
  2. ALENDRONATE [Concomitant]
     Active Substance: ALENDRONATE SODIUM
  3. L THYROXINE [Concomitant]
     Active Substance: LEVOTHYROXINE SODIUM

REACTIONS (2)
  - Lymphoma [Not Recovered/Not Resolved]
  - Platelet count decreased [Unknown]

NARRATIVE: CASE EVENT DATE: 20170222
